FAERS Safety Report 19309827 (Version 4)
Quarter: 2022Q3

REPORT INFORMATION
  Report Type: Report from Study
  Country: GB (occurrence: GB)
  Receive Date: 20210526
  Receipt Date: 20220715
  Transmission Date: 20221027
  Serious: Yes (Hospitalization, Other)
  Sender: FDA-Public Use
  Company Number: None

PATIENT
  Age: 68 Year
  Sex: Female

DRUGS (3)
  1. KISQALI [Suspect]
     Active Substance: RIBOCICLIB
     Indication: Breast cancer metastatic
     Dosage: 600 MG, QD (200 MG TID) (DAILY FOR 21 DAYS OF THE WEEK))
     Route: 048
     Dates: start: 20201126
  2. KISQALI [Suspect]
     Active Substance: RIBOCICLIB
     Dosage: 600 MG (21 DAYS OF THE MONTH)
     Route: 048
  3. BISOPROLOL [Concomitant]
     Active Substance: BISOPROLOL
     Indication: Product used for unknown indication
     Dosage: 2.5 MG, QD
     Route: 048

REACTIONS (9)
  - Dizziness [Recovering/Resolving]
  - Gout [Unknown]
  - Peripheral swelling [Unknown]
  - Palpitations [Recovered/Resolved]
  - Blood glucose increased [Unknown]
  - Blood phosphorus decreased [Not Recovered/Not Resolved]
  - Neutrophil count decreased [Unknown]
  - Lethargy [Unknown]
  - Inappropriate schedule of product administration [Unknown]

NARRATIVE: CASE EVENT DATE: 20200526
